FAERS Safety Report 9630212 (Version 2)
Quarter: 2014Q1

REPORT INFORMATION
  Report Type: Spontaneous
  Country: GB (occurrence: GB)
  Receive Date: 20131017
  Receipt Date: 20140131
  Transmission Date: 20141002
  Serious: Yes (Disabling)
  Sender: FDA-Public Use
  Company Number: GB-WATSON-2013-18892

PATIENT
  Age: 44 Year
  Sex: Female
  Weight: 79 kg

DRUGS (9)
  1. MIRTAZAPINE (UNKNOWN) [Suspect]
     Indication: ANTIDEPRESSANT DRUG CLEARANCE DECREASED
     Dosage: 15 MG, DAILY
     Route: 048
     Dates: end: 20130921
  2. MIRTAZAPINE (UNKNOWN) [Suspect]
     Dosage: 30 MG, DAILY
     Route: 048
  3. MIRTAZAPINE (UNKNOWN) [Suspect]
     Dosage: 45 MG, DAILY
     Route: 048
  4. MIRTAZAPINE (UNKNOWN) [Suspect]
     Dosage: 60 MG, DAILY; AT NIGHT 2X 30MG NIGHTLY
     Route: 048
     Dates: start: 20120901
  5. NAPROXEN [Concomitant]
     Indication: PRODUCT USED FOR UNKNOWN INDICATION
     Dosage: UNK
     Route: 065
  6. OMEPRAZOLE [Concomitant]
     Indication: PRODUCT USED FOR UNKNOWN INDICATION
     Dosage: UNK
     Route: 065
  7. PARACETAMOL [Concomitant]
     Indication: PRODUCT USED FOR UNKNOWN INDICATION
     Dosage: UNK
     Route: 065
  8. TRAMADOL [Concomitant]
     Indication: PRODUCT USED FOR UNKNOWN INDICATION
     Dosage: UNK; SLOW RELEASE
     Route: 065
  9. CELLUVISC                          /00007002/ [Concomitant]
     Indication: PRODUCT USED FOR UNKNOWN INDICATION
     Dosage: UNK
     Route: 065

REACTIONS (8)
  - Insomnia [Not Recovered/Not Resolved]
  - Cold sweat [Recovered/Resolved]
  - Headache [Recovered/Resolved]
  - Mood swings [Recovered/Resolved]
  - Nausea [Recovered/Resolved]
  - Fatigue [Recovered/Resolved]
  - Influenza like illness [Recovered/Resolved]
  - Hyperhidrosis [Recovered/Resolved]
